FAERS Safety Report 18756153 (Version 1)
Quarter: 2021Q1

REPORT INFORMATION
  Report Type: Report from Study
  Country: CA (occurrence: CA)
  Receive Date: 20210119
  Receipt Date: 20210119
  Transmission Date: 20210419
  Serious: Yes (Death)
  Sender: FDA-Public Use
  Company Number: CA-PFIZER INC-2021030090

PATIENT

DRUGS (9)
  1. PREDNISONE. [Concomitant]
     Active Substance: PREDNISONE
     Dosage: 50 MG, DAILY; FOR WEEK 1?5 AND ALTERNATE DAYS FOR WEEK 6?9
  2. KETOCONAZOLE. [Concomitant]
     Active Substance: KETOCONAZOLE
     Dosage: 200 MG, DAILY FOR WEEKS 2?10
     Route: 048
  3. DOXORUBICIN HCL [Suspect]
     Active Substance: DOXORUBICIN HYDROCHLORIDE
     Indication: SMALL CELL LUNG CANCER EXTENSIVE STAGE
     Dosage: 40 MG/M2 ON WEEKS 1, 3, 5,7 AND 9
     Route: 042
  4. ETOPOSIDE. [Suspect]
     Active Substance: ETOPOSIDE
     Indication: SMALL CELL LUNG CANCER EXTENSIVE STAGE
     Dosage: 80 MG/M2 DAY 1 ON WEEKS 1, 3, 5,7 AND 9
     Route: 042
  5. COTRIMOXAZOLE [Concomitant]
     Active Substance: SULFAMETHOXAZOLE\TRIMETHOPRIM
     Dosage: 1 DS 2 TIMES A DAY FOR WEEKS 2?10
     Route: 048
  6. VINCRISTINE SULFATE. [Suspect]
     Active Substance: VINCRISTINE SULFATE
     Indication: SMALL CELL LUNG CANCER EXTENSIVE STAGE
     Dosage: 1 MG/M2 ON WEEKS 1, 2, 4, 6 AND 8
     Route: 042
  7. ETOPOSIDE. [Suspect]
     Active Substance: ETOPOSIDE
     Dosage: 80 MG/M2, ON DAY 2 AND DAY 3 ON WEEKS 1, 3, 5,7 AND 9
     Route: 048
  8. CIMETIDINE [Concomitant]
     Active Substance: CIMETIDINE
     Dosage: 600 MG, 2X/DAY FOR WEEKS 1?10
  9. CISPLATIN. [Suspect]
     Active Substance: CISPLATIN
     Indication: SMALL CELL LUNG CANCER EXTENSIVE STAGE
     Dosage: 25 MG/M2 FOR 8 WEEKS
     Route: 042

REACTIONS (1)
  - Pulmonary embolism [Fatal]
